FAERS Safety Report 7199676-8 (Version None)
Quarter: 2010Q4

REPORT INFORMATION
  Report Type: 
  Country: None (occurrence: None)
  Receive Date: 20101228
  Receipt Date: 20101216
  Transmission Date: 20110411
  Serious: Yes (Hospitalization, Other)
  Sender: FDA-Public Use
  Company Number: US-ELI_LILLY_AND_COMPANY-US201008007882

PATIENT
  Sex: Female

DRUGS (16)
  1. FORTEO [Suspect]
     Indication: OSTEOPOROSIS
     Dosage: 20 UG, DAILY (1/D)
     Dates: start: 20100822
  2. HUMALOG [Suspect]
     Dosage: 1 U, AT BREAKFAST EVERY 15MG OF CARBOHYDRATES
  3. HUMALOG [Suspect]
     Dosage: 1 U, AT LUNCH EVERY 15MG OF CARBOHYDRATES
  4. HUMALOG [Suspect]
     Dosage: 1 U, AT DINNER EVERY 12MG OF CARBOHYDRATES
  5. PREDNISONE [Concomitant]
     Dosage: 15 MG, DAILY (1/D) AT BREAKFAST
  6. CALTRATE D                         /00944201/ [Concomitant]
     Dosage: 1 D/F, 2/D AT BREAKFAST AND LUNCH
  7. DIGOXIN [Concomitant]
     Dosage: 1 D/F, DAILY (1/D) WITH BREAKFAST
  8. METOPROLOL TARTRATE [Concomitant]
     Dosage: 25 MG, 2/D AT BREAKFAST AND DINNER
  9. LANTUS [Concomitant]
     Dosage: 24 U, DAILY (1/D)
  10. SIMVASTATIN [Concomitant]
     Dosage: 10 MG, AT BEDTIME
  11. MULTI-VITAMIN [Concomitant]
     Dosage: UNK, DAILY (1/D) AT LUNCH
  12. MINERAL [Concomitant]
     Dosage: UNK, DAILY (1/D) AT LUNCH
  13. DIOVAN [Concomitant]
     Dosage: 160 MG, 2/D AT BREAKFAST AND DINNER
  14. AMLODIPINE BESYLATE [Concomitant]
     Dosage: 5 MG, DAILY (1/D) AT LUNCH
  15. OMEPRAZOLE [Concomitant]
     Dosage: 20 MG, DAILY (1/D) 1/2 HOUR BEFORE BREAKFAST
  16. ASPIRIN [Concomitant]
     Dosage: 81 MG, DAILY (1/D) AT LUNCH

REACTIONS (9)
  - ARRHYTHMIA [None]
  - BLOOD GLUCOSE INCREASED [None]
  - DIZZINESS [None]
  - HEART RATE INCREASED [None]
  - LIMB DISCOMFORT [None]
  - LOSS OF CONSCIOUSNESS [None]
  - MUSCULOSKELETAL DISCOMFORT [None]
  - URINARY TRACT INFECTION [None]
  - VISUAL IMPAIRMENT [None]
